FAERS Safety Report 8837068 (Version 1)
Quarter: 2012Q4

REPORT INFORMATION
  Report Type: 
  Country: MX (occurrence: MX)
  Receive Date: 20121011
  Receipt Date: 20121011
  Transmission Date: 20130627
  Serious: Yes (Other)
  Sender: FDA-Public Use
  Company Number: PHHY2012MX089038

PATIENT
  Age: 95 Year
  Sex: Female

DRUGS (2)
  1. CO-DIOVAN [Suspect]
     Indication: HYPERTENSION
     Dosage: 1 DF, UNK
     Route: 048
     Dates: start: 200801
  2. RANISEN [Concomitant]

REACTIONS (3)
  - Foot fracture [Recovered/Resolved]
  - Limb discomfort [Recovered/Resolved]
  - Blood pressure increased [Unknown]
